FAERS Safety Report 8439280-4 (Version None)
Quarter: 2012Q2

REPORT INFORMATION
  Report Type: 
  Country: None (occurrence: None)
  Receive Date: 20120615
  Receipt Date: 20120611
  Transmission Date: 20120825
  Serious: Yes (Other)
  Sender: FDA-Public Use
  Company Number: PHHY2012IT049650

PATIENT
  Sex: Male

DRUGS (1)
  1. ZOMETA [Suspect]
     Indication: METASTASES TO BONE
     Dosage: 4 MG+ 5ML (ONE POSOLOGIC UNIT)
     Route: 042
     Dates: start: 20100501, end: 20120201

REACTIONS (1)
  - OSTEONECROSIS OF JAW [None]
